FAERS Safety Report 21486842 (Version 3)
Quarter: 2024Q3

REPORT INFORMATION
  Report Type: Spontaneous
  Country: US (occurrence: US)
  Receive Date: 20221020
  Receipt Date: 20240822
  Transmission Date: 20241016
  Serious: No
  Sender: PFIZER
  Company Number: US-PFIZER INC-2019298255

PATIENT
  Age: 80 Year
  Sex: Female

DRUGS (1)
  1. PREMARIN [Suspect]
     Active Substance: ESTROGENS, CONJUGATED
     Dosage: INSERT 5 GRAMS INTRAVAGINALLY BIW, APPLY AS DIRECTED 2X/WEEK
     Route: 067

REACTIONS (2)
  - Off label use [Unknown]
  - Hypoacusis [Unknown]
